FAERS Safety Report 12548145 (Version 1)
Quarter: 2016Q3

REPORT INFORMATION
  Report Type: Spontaneous
  Country: US (occurrence: None)
  Receive Date: 20160711
  Receipt Date: 20160711
  Transmission Date: 20161109
  Serious: No
  Sender: FDA-Public Use
  Company Number: None

PATIENT
  Age: 52 Year
  Sex: Female
  Weight: 97.52 kg

DRUGS (8)
  1. VITAMIN C [Concomitant]
     Active Substance: ASCORBIC ACID
  2. DAILY VITAMIN [Concomitant]
     Active Substance: VITAMINS
  3. VIIBRYD [Suspect]
     Active Substance: VILAZODONE HYDROCHLORIDE
     Indication: DEPRESSION
     Route: 048
     Dates: start: 20130920, end: 20160630
  4. TRINTELLIX [Concomitant]
     Active Substance: VORTIOXETINE HYDROBROMIDE
  5. PREMARIN [Concomitant]
     Active Substance: ESTROGENS, CONJUGATED
  6. TOPIRAMATE. [Concomitant]
     Active Substance: TOPIRAMATE
  7. BIOTIN [Concomitant]
     Active Substance: BIOTIN
  8. LAMICTAL [Concomitant]
     Active Substance: LAMOTRIGINE

REACTIONS (1)
  - Alopecia [None]
